FAERS Safety Report 4339382-8 (Version None)
Quarter: 2004Q2

REPORT INFORMATION
  Report Type: 
  Country: None (occurrence: None)
  Receive Date: 20040415
  Receipt Date: 20031126
  Transmission Date: 20050107
  Serious: Yes (Hospitalization)
  Sender: FDA-Public Use
  Company Number: JP-MERCK-0312USA00114

PATIENT

DRUGS (2)
  1. ETIZOLAM [Concomitant]
     Indication: INSOMNIA
     Route: 065
     Dates: start: 20020116, end: 20030922
  2. ZOCOR [Suspect]
     Indication: HYPERLIPIDAEMIA
     Route: 048
     Dates: start: 20010827, end: 20030922

REACTIONS (3)
  - EXTRADURAL HAEMATOMA [None]
  - INTRACRANIAL ANEURYSM [None]
  - VON WILLEBRAND'S FACTOR MULTIMERS ABNORMAL [None]
